FAERS Safety Report 8484777-4 (Version None)
Quarter: 2012Q3

REPORT INFORMATION
  Report Type: 
  Country: None (occurrence: None)
  Receive Date: 20120703
  Receipt Date: 20120626
  Transmission Date: 20120928
  Serious: Yes (Other)
  Sender: FDA-Public Use
  Company Number: FR-SANOFI-AVENTIS-2012SA039439

PATIENT
  Age: 49 Year
  Sex: Female

DRUGS (5)
  1. PREDNISOLONE [Concomitant]
     Route: 048
     Dates: start: 20120603
  2. AMITRIPTYLINE HCL [Concomitant]
     Dosage: IN EVENING
     Route: 048
  3. TAXOTERE [Suspect]
     Indication: BREAST OPERATION
     Route: 042
     Dates: start: 20120525
  4. PREDNISOLONE [Concomitant]
     Route: 048
     Dates: end: 20120602
  5. TRIDESONIT [Concomitant]
     Route: 061

REACTIONS (8)
  - ORAL CANDIDIASIS [None]
  - ARTHRALGIA [None]
  - PARAESTHESIA [None]
  - LIP OEDEMA [None]
  - ERYTHEMA [None]
  - NEUROPATHY PERIPHERAL [None]
  - VISUAL IMPAIRMENT [None]
  - SKIN BURNING SENSATION [None]
